FAERS Safety Report 8924950 (Version 2)
Quarter: 2013Q1

REPORT INFORMATION
  Report Type: Spontaneous
  Country: JP (occurrence: JP)
  Receive Date: 20121126
  Receipt Date: 20130311
  Transmission Date: 20140127
  Serious: Yes (Hospitalization, Other)
  Sender: FDA-Public Use
  Company Number: JP-ELI_LILLY_AND_COMPANY-JP201211005118

PATIENT
  Age: 58 Year
  Sex: Male
  Weight: 59.7 kg

DRUGS (8)
  1. BYETTA [Suspect]
     Indication: TYPE 2 DIABETES MELLITUS
     Dosage: 5 UG, BID
     Route: 058
     Dates: start: 20110804, end: 201209
  2. METFORMIN HYDROCHLORIDE [Concomitant]
     Indication: TYPE 2 DIABETES MELLITUS
     Dosage: 250 MG, BID
     Route: 048
  3. AMARYL [Concomitant]
     Indication: TYPE 2 DIABETES MELLITUS
     Dosage: 0.5 MG, QD
     Route: 048
     Dates: start: 20110804, end: 20120803
  4. LYRICA [Concomitant]
     Indication: NEUROPATHY PERIPHERAL
     Dosage: 75 MG, BID
     Route: 048
     Dates: start: 20110722, end: 20110815
  5. LYRICA [Concomitant]
     Dosage: 750 MG, BID
     Dates: start: 20110830, end: 20120723
  6. MAGLAX                                  /JPN/ [Concomitant]
     Indication: CONSTIPATION
     Dosage: 500 MG, UNK
     Route: 048
     Dates: start: 20110813
  7. ZYLORIC [Concomitant]
     Dosage: 50 MG, QD
     Dates: start: 20110928, end: 20121029
  8. PARIET [Concomitant]
     Dosage: 10 MG, QD
     Dates: start: 20120718

REACTIONS (4)
  - Orthostatic hypotension [Recovered/Resolved]
  - Nausea [Unknown]
  - Decreased appetite [Unknown]
  - Weight decreased [Unknown]
